FAERS Safety Report 8894129 (Version 1)
Quarter: 2012Q4

REPORT INFORMATION
  Report Type: 
  Country: NO (occurrence: NO)
  Receive Date: 20121108
  Receipt Date: 20121108
  Transmission Date: 20130627
  Serious: Yes (Death, Other)
  Sender: FDA-Public Use
  Company Number: NO-PFIZER INC-2012275870

PATIENT
  Age: 73 Year
  Sex: Female

DRUGS (2)
  1. MEDROL [Suspect]
     Indication: BRAIN METASTASES
     Dosage: 16 mg, 3 or 4 times daily
     Route: 048
     Dates: start: 201203, end: 201205
  2. FRAGMIN [Concomitant]
     Dosage: 7500 IU, 2x/day
     Route: 058
     Dates: start: 201203, end: 201205

REACTIONS (3)
  - Peritonitis [Fatal]
  - Large intestine perforation [Fatal]
  - Rectal haemorrhage [Recovered/Resolved]
